FAERS Safety Report 4983165-2 (Version None)
Quarter: 2006Q2

REPORT INFORMATION
  Report Type: 
  Country: None (occurrence: None)
  Receive Date: 20060419
  Receipt Date: 20060407
  Transmission Date: 20061013
  Serious: Yes (Death)
  Sender: FDA-Public Use
  Company Number: 2006PI000258

PATIENT
  Age: 72 Year
  Sex: Female
  Weight: 68 kg

DRUGS (8)
  1. RETEPLASE  (RETEPLASE) [Suspect]
     Indication: ACUTE MYOCARDIAL INFARCTION
     Dosage: IVB
     Route: 040
     Dates: start: 20051227, end: 20051227
  2. REOPRO [Suspect]
     Indication: ACUTE MYOCARDIAL INFARCTION
     Dosage: IV
     Route: 042
     Dates: start: 20051227, end: 20051227
  3. CARVEDILOL [Concomitant]
  4. ACETYLSALICYLIC ACID SRT [Concomitant]
  5. AMIODARONE HCL [Concomitant]
  6. .............. [Concomitant]
  7. FUROSEMIDE [Concomitant]
  8. RAMIPRIL [Concomitant]

REACTIONS (2)
  - CARDIAC DEATH [None]
  - CARDIOVASCULAR DISORDER [None]
